FAERS Safety Report 7680034-4 (Version None)
Quarter: 2011Q3

REPORT INFORMATION
  Report Type: 
  Country: None (occurrence: None)
  Receive Date: 20110812
  Receipt Date: 20110217
  Transmission Date: 20111222
  Serious: Yes (Hospitalization, Disabling, Other)
  Sender: FDA-Public Use
  Company Number: US-BAYER-201016964NA

PATIENT
  Age: 66 Year
  Sex: Female
  Weight: 91 kg

DRUGS (22)
  1. CELEXA [Concomitant]
  2. LIDOCAINE [Suspect]
     Route: 014
     Dates: start: 20080828, end: 20080828
  3. FAMOTIDINE [Concomitant]
  4. ATENOLOL [Concomitant]
  5. PROAIR HFA [Concomitant]
  6. HYDROQUINONE [Concomitant]
  7. HYDROCHLOROTHIAZIDE [Concomitant]
  8. CELEBREX [Concomitant]
  9. CEFTRIAXONE [Concomitant]
  10. ONDANSETRON [Concomitant]
  11. OPTIRAY 350 [Suspect]
     Dosage: 5-10 ML
     Route: 014
     Dates: start: 20080828, end: 20080828
  12. VANCOMYCIN [Concomitant]
  13. RELPAX [Concomitant]
     Indication: MIGRAINE
  14. SODIUM CHLORIDE [Suspect]
     Dosage: GIVEN WITH 1 CC OF MAGNEVIST
     Route: 014
     Dates: start: 20080828, end: 20080828
  15. VITAMIN D [Concomitant]
  16. SIMVASTATIN [Concomitant]
  17. CLONIDINE [Concomitant]
  18. NIFEDIPINE [Concomitant]
  19. AYGESTIN [Concomitant]
  20. MAGNEVIST [Suspect]
     Indication: ARTHROGRAM
     Dosage: 1 CC DILUTED WITH 10 ML 0F 0.9% NORMAL SALINE
     Route: 014
     Dates: start: 20080828, end: 20080828
  21. CLIMARA [Concomitant]
  22. BONIVA [Concomitant]

REACTIONS (6)
  - RENAL TUBULAR NECROSIS [None]
  - ARTHRITIS INFECTIVE [None]
  - SEPTIC ARTHRITIS STAPHYLOCOCCAL [None]
  - PAIN [None]
  - GENERAL PHYSICAL HEALTH DETERIORATION [None]
  - RENAL FAILURE ACUTE [None]
